FAERS Safety Report 10035941 (Version 1)
Quarter: 2014Q1

REPORT INFORMATION
  Report Type: Spontaneous
  Country: GB (occurrence: GB)
  Receive Date: 20140325
  Receipt Date: 20140325
  Transmission Date: 20141002
  Serious: Yes (Other)
  Sender: FDA-Public Use
  Company Number: GB-BRISTOL-MYERS SQUIBB COMPANY-20552865

PATIENT
  Sex: Female

DRUGS (1)
  1. FORXIGA [Suspect]
     Indication: DIABETES MELLITUS

REACTIONS (2)
  - Adrenal adenoma [Unknown]
  - Drug ineffective [Unknown]
